FAERS Safety Report 18016948 (Version 1)
Quarter: 2020Q3

REPORT INFORMATION
  Report Type: Report from Study
  Country: GT (occurrence: GT)
  Receive Date: 20200713
  Receipt Date: 20200713
  Transmission Date: 20201103
  Serious: Yes (Other)
  Sender: FDA-Public Use
  Company Number: NVSC2020GT195932

PATIENT
  Age: 81 Year
  Sex: Male

DRUGS (1)
  1. REVOLADE [Suspect]
     Active Substance: ELTROMBOPAG
     Indication: PRODUCT USED FOR UNKNOWN INDICATION
     Dosage: 25 MG
     Route: 065
     Dates: start: 200507

REACTIONS (4)
  - Thrombocytopenia [Recovered/Resolved]
  - Neuropathy peripheral [Unknown]
  - Pain in extremity [Unknown]
  - Diabetes mellitus [Unknown]
